FAERS Safety Report 7821354-X (Version None)
Quarter: 2011Q4

REPORT INFORMATION
  Report Type: 
  Country: None (occurrence: None)
  Receive Date: 20111018
  Receipt Date: 20101021
  Transmission Date: 20120403
  Serious: No
  Sender: FDA-Public Use
  Company Number: US-ASTRAZENECA-2010SE49990

PATIENT
  Sex: Female

DRUGS (19)
  1. HYDROXYTHLOROQUIN [Concomitant]
     Route: 065
  2. SINGULAIR [Concomitant]
     Route: 065
  3. ASPIRIN [Concomitant]
     Route: 065
  4. OMEPRAZOLE [Concomitant]
     Route: 065
  5. CLARITIN [Concomitant]
     Route: 065
  6. SLUTICAZONE [Concomitant]
     Route: 065
  7. PYRIDOSTIGMINE BROMIDE [Concomitant]
     Route: 065
  8. DIAZEPAM [Concomitant]
     Dosage: 1-2 TIMES A DAY
     Route: 065
  9. GABAPENTIN [Concomitant]
     Dosage: 300 MG TWICE AT NIGHT
     Route: 065
  10. XOPENEX [Concomitant]
     Dosage: PRN
     Route: 065
  11. FUROSEMIDE [Concomitant]
     Route: 065
  12. CETIRIZINE HCL [Concomitant]
     Route: 065
  13. SIMVASTATIN [Concomitant]
     Route: 065
  14. SYMBICORT [Suspect]
     Indication: ASTHMA
     Dosage: 160/4.5 UG 2 PUFFS TWICE DAILY
     Route: 055
     Dates: start: 20060101
  15. MELOXICAM [Concomitant]
     Route: 065
  16. CYCLOBENZAPRINE [Concomitant]
     Route: 065
  17. NASAL SPRAY [Concomitant]
     Route: 065
  18. ATENOLOL [Concomitant]
     Route: 065
  19. BOTOX [Concomitant]
     Indication: BLEPHAROSPASM
     Route: 065

REACTIONS (4)
  - HYPERTENSION [None]
  - INCREASED UPPER AIRWAY SECRETION [None]
  - TREMOR [None]
  - DRUG DOSE OMISSION [None]
